FAERS Safety Report 12057171 (Version 1)
Quarter: 2016Q1

REPORT INFORMATION
  Report Type: Spontaneous
  Country: US (occurrence: US)
  Receive Date: 20160209
  Receipt Date: 20160209
  Transmission Date: 20160526
  Serious: No
  Sender: FDA-Public Use
  Company Number: US-ABBVIE-15P-163-1481982-00

PATIENT
  Age: 70 Year
  Sex: Female
  Weight: 57 kg

DRUGS (20)
  1. XELJANZ [Suspect]
     Active Substance: TOFACITINIB CITRATE
     Indication: RHEUMATOID ARTHRITIS
     Dosage: ONE IN MORNING AND ONE AT NIGHT
     Route: 065
     Dates: start: 201401
  2. BIOTIN [Concomitant]
     Active Substance: BIOTIN
     Indication: NAIL DISORDER
  3. VICODIN [Concomitant]
     Active Substance: ACETAMINOPHEN\HYDROCODONE BITARTRATE
     Indication: PRODUCT USED FOR UNKNOWN INDICATION
     Dosage: 5/325MG, HAS TAKEN 2 SINCE APR 2015
     Route: 065
     Dates: start: 201504
  4. CALCIUM MAGNESIUM [Concomitant]
     Active Substance: CALCIUM\MAGNESIUM
     Indication: PRODUCT USED FOR UNKNOWN INDICATION
     Dosage: 1000MG WHICH INCLUDES MAGNESIUM 400MG
     Route: 065
  5. MAGNESIUM [Concomitant]
     Active Substance: MAGNESIUM
     Indication: PRODUCT USED FOR UNKNOWN INDICATION
     Dosage: THREE TIMES A DAY, AT NIGHT FOR LEG CRAPS
     Route: 065
  6. REMICADE [Suspect]
     Active Substance: INFLIXIMAB
     Indication: RHEUMATOID ARTHRITIS
     Route: 065
  7. MULTIVITAMINS [Concomitant]
     Active Substance: VITAMINS
     Indication: PRODUCT USED FOR UNKNOWN INDICATION
     Route: 065
  8. ENBREL [Suspect]
     Active Substance: ETANERCEPT
     Indication: RHEUMATOID ARTHRITIS
     Route: 065
  9. SULINDAC. [Concomitant]
     Active Substance: SULINDAC
     Indication: PAIN
     Dosage: ONE IN THE MORNING AND NIGHT
     Route: 065
  10. FISH OIL [Concomitant]
     Active Substance: FISH OIL
     Indication: PRODUCT USED FOR UNKNOWN INDICATION
     Dosage: ONE IN THE MORNING TO TAKE W/ XELJANZ B/C CHOLESTEROL STARTED GOING UP
     Route: 065
  11. GABAPENTIN. [Suspect]
     Active Substance: GABAPENTIN
     Indication: SPINAL COLUMN STENOSIS
     Route: 065
     Dates: start: 201408
  12. HUMIRA [Suspect]
     Active Substance: ADALIMUMAB
     Indication: RHEUMATOID ARTHRITIS
     Route: 058
     Dates: end: 201401
  13. PREDNISONE. [Suspect]
     Active Substance: PREDNISONE
     Indication: RHEUMATOID ARTHRITIS
     Dosage: ONCE IN THE MORNING
     Route: 065
     Dates: start: 199111
  14. GABAPENTIN. [Suspect]
     Active Substance: GABAPENTIN
     Indication: SCIATICA
  15. MISOPROSTOL. [Concomitant]
     Active Substance: MISOPROSTOL
     Indication: GASTROOESOPHAGEAL REFLUX DISEASE
     Route: 065
  16. OMEPRAZOLE. [Concomitant]
     Active Substance: OMEPRAZOLE
     Indication: GASTROOESOPHAGEAL REFLUX DISEASE
     Route: 065
  17. RANITIDINE [Concomitant]
     Active Substance: RANITIDINE\RANITIDINE HYDROCHLORIDE
     Indication: GASTROOESOPHAGEAL REFLUX DISEASE
     Route: 065
  18. ESTRACE [Concomitant]
     Active Substance: ESTRADIOL
     Indication: VULVOVAGINAL DRYNESS
     Route: 067
  19. BIOTIN [Concomitant]
     Active Substance: BIOTIN
     Indication: HAIR DISORDER
     Route: 065
  20. BIOTIN [Concomitant]
     Active Substance: BIOTIN
     Indication: ALOPECIA

REACTIONS (12)
  - Contusion [Not Recovered/Not Resolved]
  - Skin atrophy [Not Recovered/Not Resolved]
  - Staphylococcal infection [Recovered/Resolved]
  - Alopecia [Not Recovered/Not Resolved]
  - Staphylococcal infection [Recovered/Resolved]
  - Rash papular [Not Recovered/Not Resolved]
  - Body tinea [Recovered/Resolved]
  - Pruritus [Not Recovered/Not Resolved]
  - Blood cholesterol increased [Recovering/Resolving]
  - Pain of skin [Not Recovered/Not Resolved]
  - Drug dose omission [Not Recovered/Not Resolved]
  - Rash [Not Recovered/Not Resolved]

NARRATIVE: CASE EVENT DATE: 201407
